FAERS Safety Report 19942147 (Version 1)
Quarter: 2021Q4

REPORT INFORMATION
  Report Type: Spontaneous
  Country: CA (occurrence: CA)
  Receive Date: 20211011
  Receipt Date: 20211011
  Transmission Date: 20220303
  Serious: Yes (Other)
  Sender: FDA-Public Use
  Company Number: CA-TEVA-2021-CA-1962745

PATIENT
  Age: 31 Year
  Sex: Female

DRUGS (1)
  1. CLOBETASOL PROPIONATE [Suspect]
     Active Substance: CLOBETASOL PROPIONATE
     Indication: Skin hyperpigmentation
     Route: 065

REACTIONS (5)
  - Dermatitis [Unknown]
  - Erythema [Unknown]
  - Pruritus [Unknown]
  - Skin irritation [Unknown]
  - Expired product administered [Unknown]
